FAERS Safety Report 5551325-8 (Version None)
Quarter: 2007Q4

REPORT INFORMATION
  Report Type: 
  Country: None (occurrence: None)
  Receive Date: 20071212
  Receipt Date: 20071128
  Transmission Date: 20080405
  Serious: Yes (Life-Threatening, Other)
  Sender: FDA-Public Use
  Company Number: DK-AMGEN-US250515

PATIENT
  Sex: Female

DRUGS (2)
  1. ENBREL [Suspect]
     Indication: ACUTE FEBRILE NEUTROPHILIC DERMATOSIS
     Route: 058
     Dates: start: 20051020, end: 20071111
  2. AZATHIOPRINE [Concomitant]
     Indication: ACUTE FEBRILE NEUTROPHILIC DERMATOSIS
     Dosage: 50 MG X 2
     Route: 048
     Dates: start: 20051007, end: 20051110

REACTIONS (1)
  - SMALL CELL CARCINOMA [None]
